FAERS Safety Report 4878036-6 (Version None)
Quarter: 2006Q1

REPORT INFORMATION
  Report Type: 
  Country: None (occurrence: None)
  Receive Date: 20060110
  Receipt Date: 20060102
  Transmission Date: 20060701
  Serious: Yes (Hospitalization)
  Sender: FDA-Public Use
  Company Number: 2006000495

PATIENT
  Age: 66 Year
  Sex: Female

DRUGS (6)
  1. TAHOR                    (ATORVASTATIN) [Suspect]
     Indication: ILL-DEFINED DISORDER
     Dosage: 40 MG (1 IN 1 D), ORAL
     Route: 048
  2. ASPIRIN [Suspect]
     Indication: ILL-DEFINED DISORDER
     Dosage: 75 MG (1 IN 1 D), ORAL
     Route: 048
     Dates: end: 20051122
  3. DIAMICRON               (GLICLAZIDE) [Suspect]
     Indication: ILL-DEFINED DISORDER
     Dosage: 3 DOSE FORMS (1 IN 1 D), ORAL
     Route: 048
  4. PYOSTACINE                 (PRISTINAMYCIN) [Suspect]
     Indication: ILL-DEFINED DISORDER
     Dosage: 2000 MG ( 500 MG, 1 IN 1 D), ORAL
     Route: 048
     Dates: start: 20051121, end: 20051201
  5. COUMADIN [Suspect]
     Indication: ILL-DEFINED DISORDER
     Dosage: 3 MG (2 MG, 1 IN 1 D), ORAL
     Route: 048
     Dates: end: 20051125
  6. DIGOXIN [Concomitant]

REACTIONS (2)
  - DRUG INTERACTION [None]
  - EPISTAXIS [None]
